FAERS Safety Report 23647983 (Version 2)
Quarter: 2024Q2

REPORT INFORMATION
  Report Type: Spontaneous
  Country: US (occurrence: US)
  Receive Date: 20240319
  Receipt Date: 20240403
  Transmission Date: 20240716
  Serious: No
  Sender: FDA-Public Use
  Company Number: US-SANDOZ-SDZ2024US027981

PATIENT
  Sex: Female

DRUGS (4)
  1. TOBRAMYCIN [Suspect]
     Active Substance: TOBRAMYCIN
     Indication: Product used for unknown indication
     Dosage: UNK
     Route: 065
  2. CAYSTON [Suspect]
     Active Substance: AZTREONAM
     Indication: Cystic fibrosis
     Dosage: 225 MG, QD (1 AMPULE 3TIMES A DAY FOR 28 DAYS)
     Dates: start: 20240229
  3. CAYSTON [Suspect]
     Active Substance: AZTREONAM
     Indication: Bronchiectasis
     Dosage: 75 MG
     Dates: start: 20240301
  4. CAYSTON [Suspect]
     Active Substance: AZTREONAM
     Indication: Pseudomonas infection

REACTIONS (5)
  - Drug hypersensitivity [Unknown]
  - Bronchospasm [Not Recovered/Not Resolved]
  - Cough [Unknown]
  - Headache [Not Recovered/Not Resolved]
  - Off label use [Unknown]
